FAERS Safety Report 17972496 (Version 1)
Quarter: 2020Q3

REPORT INFORMATION
  Report Type: Spontaneous
  Country: BE (occurrence: BE)
  Receive Date: 20200702
  Receipt Date: 20200702
  Transmission Date: 20201103
  Serious: Yes (Other)
  Sender: FDA-Public Use
  Company Number: BE-GLAXOSMITHKLINE-BE2020083447

PATIENT
  Sex: Male
  Weight: 120 kg

DRUGS (1)
  1. NUCALA [Suspect]
     Active Substance: MEPOLIZUMAB
     Indication: PRODUCT USED FOR UNKNOWN INDICATION
     Dosage: 100 MG, Z,(MONTHLY)
     Dates: start: 20180207

REACTIONS (2)
  - Pain in extremity [Recovered/Resolved]
  - Gait disturbance [Recovered/Resolved]
